FAERS Safety Report 16121109 (Version 1)
Quarter: 2019Q1

REPORT INFORMATION
  Report Type: Spontaneous
  Country: CA (occurrence: CA)
  Receive Date: 20190327
  Receipt Date: 20190327
  Transmission Date: 20190418
  Serious: Yes (Hospitalization, Other)
  Sender: FDA-Public Use
  Company Number: CA-JNJFOC-20190328738

PATIENT
  Age: 60 Year
  Sex: Male

DRUGS (8)
  1. TYLENOL [Suspect]
     Active Substance: ACETAMINOPHEN
     Indication: CHEST PAIN
     Route: 065
  2. SALBUTAMOL [Concomitant]
     Active Substance: ALBUTEROL
     Indication: PRODUCT USED FOR UNKNOWN INDICATION
     Route: 065
  3. ADVAIR HFA [Concomitant]
     Active Substance: FLUTICASONE PROPIONATE\SALMETEROL XINAFOATE
     Indication: PRODUCT USED FOR UNKNOWN INDICATION
     Route: 065
  4. AMLODIPINE BESILATE [Concomitant]
     Active Substance: AMLODIPINE BESYLATE
     Indication: PRODUCT USED FOR UNKNOWN INDICATION
     Route: 065
  5. PREDNISONE. [Concomitant]
     Active Substance: PREDNISONE
     Indication: ASTHMA
     Route: 065
  6. ACTONEL [Concomitant]
     Active Substance: RISEDRONATE SODIUM
     Indication: PRODUCT USED FOR UNKNOWN INDICATION
     Route: 065
  7. TYLENOL [Suspect]
     Active Substance: ACETAMINOPHEN
     Route: 065
  8. SEEBRI BREEZHALER [Suspect]
     Active Substance: GLYCOPYRROLATE
     Indication: ASTHMA
     Route: 055

REACTIONS (15)
  - Asthma [Unknown]
  - Nausea [Unknown]
  - Cough [Unknown]
  - Productive cough [Unknown]
  - Chest pain [Unknown]
  - Obstructive airways disorder [Unknown]
  - Muscle spasms [Unknown]
  - Forced expiratory volume decreased [Unknown]
  - Dyspnoea [Unknown]
  - Stress [Unknown]
  - Product use in unapproved indication [Unknown]
  - Breath sounds abnormal [Unknown]
  - Wheezing [Unknown]
  - Pulmonary function test decreased [Unknown]
  - Restrictive pulmonary disease [Unknown]
